FAERS Safety Report 19578544 (Version 2)
Quarter: 2021Q3

REPORT INFORMATION
  Report Type: Report from Study
  Country: None (occurrence: CH)
  Receive Date: 20210720
  Receipt Date: 20210906
  Transmission Date: 20211014
  Serious: Yes (Hospitalization, Other)
  Sender: FDA-Public Use
  Company Number: CH-ABBVIE-21K-151-3988623-00

PATIENT
  Age: 57 Year
  Sex: Female
  Weight: 88 kg

DRUGS (6)
  1. ZOLPIDEM [Concomitant]
     Active Substance: ZOLPIDEM TARTRATE
     Indication: INITIAL INSOMNIA
     Dosage: ZENTIVA?1 IN THE EVENING
     Route: 048
     Dates: start: 20210406
  2. SKYRIZI [Suspect]
     Active Substance: RISANKIZUMAB-RZAA
     Indication: PSORIASIS
     Route: 058
     Dates: start: 20210224
  3. LINOLA [Concomitant]
     Indication: PSORIASIS
     Dosage: FOR THE FACE; LINOLA CREAM
     Route: 061
     Dates: start: 20210401
  4. DERMOVATE [Concomitant]
     Active Substance: CLOBETASOL
     Indication: PUSTULAR PSORIASIS
     Dosage: TOWEL THERAPY FOR THE BODY, AND FOR HAND AND FEET, DERMOVATE OINTMENT
     Route: 061
     Dates: start: 20210331, end: 20210406
  5. EUTHYROX [Concomitant]
     Active Substance: LEVOTHYROXINE SODIUM
     Indication: HYPOTHYROIDISM
     Route: 048
     Dates: start: 202101
  6. CARBOWAX SALICYLIC ACID [Concomitant]
     Indication: PSORIASIS
     Dosage: FOR THE SCALP
     Route: 061
     Dates: start: 20210401

REACTIONS (24)
  - Alopecia [Unknown]
  - Tri-iodothyronine free decreased [Unknown]
  - Erysipelas [Recovered/Resolved]
  - Inflammatory marker increased [Unknown]
  - Macular oedema [Unknown]
  - Impaired work ability [Unknown]
  - Oedema peripheral [Unknown]
  - Lymphocyte count decreased [Unknown]
  - Blood fibrinogen increased [Unknown]
  - Chills [Unknown]
  - Erythema [Unknown]
  - Blood folate decreased [Unknown]
  - Hyperkeratosis [Recovering/Resolving]
  - Headache [Unknown]
  - Pyrexia [Unknown]
  - Sleep disorder [Not Recovered/Not Resolved]
  - Initial insomnia [Unknown]
  - Limb deformity [Unknown]
  - Palmoplantar keratoderma [Unknown]
  - Psoriasis [Unknown]
  - Drug ineffective [Unknown]
  - Cardiopulmonary failure [Unknown]
  - Immature granulocyte count increased [Unknown]
  - Peripheral venous disease [Unknown]

NARRATIVE: CASE EVENT DATE: 2021
